FAERS Safety Report 13982245 (Version 1)
Quarter: 2017Q3

REPORT INFORMATION
  Report Type: Spontaneous
  Country: US (occurrence: None)
  Receive Date: 20170916
  Receipt Date: 20170916
  Transmission Date: 20171128
  Serious: Yes (Death, Hospitalization)
  Sender: FDA-Public Use
  Company Number: None

PATIENT
  Age: 66 Year
  Sex: Male
  Weight: 102.5 kg

DRUGS (4)
  1. CARBOPLATIN. [Suspect]
     Active Substance: CARBOPLATIN
     Dates: end: 20121108
  2. PEMETREXED. [Suspect]
     Active Substance: PEMETREXED
     Dates: end: 20130402
  3. TAXOL [Suspect]
     Active Substance: PACLITAXEL
     Dates: end: 20121108
  4. BEVACIZUMAB. [Suspect]
     Active Substance: BEVACIZUMAB
     Dates: end: 20121108

REACTIONS (1)
  - Hepatic failure [None]

NARRATIVE: CASE EVENT DATE: 20130424
